FAERS Safety Report 5971853-0 (Version None)
Quarter: 2008Q4

REPORT INFORMATION
  Report Type: 
  Country: None (occurrence: None)
  Receive Date: 20081124
  Receipt Date: 20081118
  Transmission Date: 20090506
  Serious: Yes (Hospitalization)
  Sender: FDA-Public Use
  Company Number: 2008JP005424

PATIENT
  Age: 49 Year
  Sex: Male
  Weight: 53.7 kg

DRUGS (1)
  1. TACROLIMUS [Suspect]
     Dosage: 6 MG/D, ORAL
     Route: 048
     Dates: start: 20080422, end: 20080429

REACTIONS (7)
  - CHILLS [None]
  - DEPRESSED LEVEL OF CONSCIOUSNESS [None]
  - DYSPNOEA [None]
  - HYPOTENSION [None]
  - PYREXIA [None]
  - RENAL FAILURE ACUTE [None]
  - SEPTIC SHOCK [None]
